FAERS Safety Report 19815257 (Version 2)
Quarter: 2021Q3

REPORT INFORMATION
  Report Type: Spontaneous
  Country: DE (occurrence: DE)
  Receive Date: 20210909
  Receipt Date: 20210915
  Transmission Date: 20211014
  Serious: Yes (Hospitalization, Other)
  Sender: FDA-Public Use
  Company Number: DE-SAMSUNG BIOEPIS-SB-2021-21204

PATIENT
  Age: 81 Year
  Sex: Male

DRUGS (1)
  1. BENEPALI [Suspect]
     Active Substance: ETANERCEPT
     Indication: RHEUMATIC DISORDER
     Dosage: MG/ML
     Route: 058
     Dates: start: 202008

REACTIONS (12)
  - Balance disorder [Recovered/Resolved]
  - Amnesia [Recovered/Resolved]
  - Emotional distress [Recovered/Resolved]
  - Insomnia [Recovered/Resolved]
  - Nasal disorder [Recovered/Resolved]
  - Herpes zoster [Recovered/Resolved]
  - Product use in unapproved indication [Unknown]
  - Disturbance in attention [Recovered/Resolved]
  - Tremor [Recovered/Resolved]
  - Feeling guilty [Recovered/Resolved]
  - Tinnitus [Recovered/Resolved]
  - Neuralgia [Recovered/Resolved]
